FAERS Safety Report 8133626-2 (Version None)
Quarter: 2012Q1

REPORT INFORMATION
  Report Type: 
  Country: None (occurrence: None)
  Receive Date: 20120213
  Receipt Date: 20120112
  Transmission Date: 20120608
  Serious: Yes (Other)
  Sender: FDA-Public Use
  Company Number: DZ-ROCHE-1009636

PATIENT
  Sex: Female

DRUGS (2)
  1. PEGASYS [Suspect]
     Indication: HEPATITIS C
     Route: 058
     Dates: start: 20080101, end: 20110101
  2. COPEGUS [Suspect]
     Indication: HEPATITIS C
     Route: 048
     Dates: start: 20080101, end: 20110101

REACTIONS (6)
  - BLOOD CREATININE INCREASED [None]
  - ASCITES [None]
  - NEPHROTIC SYNDROME [None]
  - PROTEIN URINE [None]
  - RENAL FAILURE CHRONIC [None]
  - OEDEMA PERIPHERAL [None]
